FAERS Safety Report 8237482-3 (Version None)
Quarter: 2012Q1

REPORT INFORMATION
  Report Type: 
  Country: None (occurrence: None)
  Receive Date: 20120327
  Receipt Date: 20120319
  Transmission Date: 20120608
  Serious: Yes (Hospitalization)
  Sender: FDA-Public Use
  Company Number: PHHY2012US023923

PATIENT
  Age: 49 Year
  Sex: Male
  Weight: 74 kg

DRUGS (5)
  1. GLYBURIDE [Suspect]
     Indication: TYPE 2 DIABETES MELLITUS
     Dosage: 350 MILLIGRAMS
  2. GEMFIBROZIL [Concomitant]
     Dosage: 600 MG, QD
  3. LISINOPRIL [Concomitant]
     Dosage: 5 MG, QD
  4. VARDENAFIL HYDROCHLORIDE (LEVITRA) [Concomitant]
     Dosage: 10 MG, PRN
  5. METFORMIN HCL [Suspect]
     Indication: TYPE 2 DIABETES MELLITUS
     Dosage: 52 GRAMS

REACTIONS (29)
  - UNRESPONSIVE TO STIMULI [None]
  - DEAFNESS [None]
  - ACOUSTIC STIMULATION TESTS ABNORMAL [None]
  - EAR PAIN [None]
  - RESPIRATORY DISTRESS [None]
  - HYPERNATRAEMIA [None]
  - RENAL FAILURE ACUTE [None]
  - TINNITUS [None]
  - HYPOGLYCAEMIA [None]
  - DIARRHOEA [None]
  - LACTIC ACIDOSIS [None]
  - TYMPANIC MEMBRANE DISORDER [None]
  - DEAFNESS NEUROSENSORY [None]
  - HYPOTENSION [None]
  - HYPERGLYCAEMIA [None]
  - LEUKOCYTOSIS [None]
  - STAPHYLOCOCCAL INFECTION [None]
  - VERTIGO [None]
  - INTENTIONAL OVERDOSE [None]
  - ANION GAP INCREASED [None]
  - SUICIDE ATTEMPT [None]
  - OTITIS EXTERNA [None]
  - THROMBOCYTOPENIA [None]
  - NAUSEA [None]
  - CEREBRAL ISCHAEMIA [None]
  - STREPTOCOCCAL INFECTION [None]
  - PYREXIA [None]
  - NECROSIS [None]
  - DRUG LEVEL INCREASED [None]
